FAERS Safety Report 9373296 (Version 2)
Quarter: 2013Q3

REPORT INFORMATION
  Report Type: Spontaneous
  Country: SE (occurrence: SE)
  Receive Date: 20130627
  Receipt Date: 20130722
  Transmission Date: 20140515
  Serious: Yes (Death, Hospitalization)
  Sender: FDA-Public Use
  Company Number: CHNY2013SE001375

PATIENT
  Age: 2 Year
  Sex: Male

DRUGS (2)
  1. TAVEGYL [Suspect]
     Indication: PRURITUS
     Dosage: UNK, UNK
     Route: 065
  2. ANTIBIOTICS [Concomitant]
     Dosage: UNK, UNK

REACTIONS (7)
  - Pleural effusion [Fatal]
  - Streptococcus test positive [Fatal]
  - Cardiac arrest [Fatal]
  - Loss of consciousness [Fatal]
  - Pulse abnormal [Unknown]
  - Pyrexia [Unknown]
  - Dyspnoea [Unknown]
